FAERS Safety Report 6721135-4 (Version None)
Quarter: 2010Q2

REPORT INFORMATION
  Report Type: 
  Country: None (occurrence: None)
  Receive Date: 20100510
  Receipt Date: 20100426
  Transmission Date: 20101027
  Serious: Yes (Other)
  Sender: FDA-Public Use
  Company Number: 2010AP000750

PATIENT
  Age: 34 Year
  Sex: Female

DRUGS (6)
  1. TOPIRAMATE [Suspect]
     Indication: INTENTIONAL SELF-INJURY
     Dosage: 700 MG;PO
     Route: 048
     Dates: start: 20090101
  2. GABAPENTIN [Suspect]
     Indication: NEURALGIA
     Dosage: 2.7 GM;PO;QD
     Route: 048
     Dates: start: 20060101
  3. DIAZEPAM [Concomitant]
  4. ESCITALOPRAM [Concomitant]
  5. TRAMADOL HCL [Concomitant]
  6. WARFARIN SODIUM [Concomitant]

REACTIONS (3)
  - FOLATE DEFICIENCY [None]
  - GLOSSODYNIA [None]
  - TONGUE ULCERATION [None]
